FAERS Safety Report 10224407 (Version 1)
Quarter: 2014Q2

REPORT INFORMATION
  Report Type: Spontaneous
  Country: US (occurrence: US)
  Receive Date: 20140609
  Receipt Date: 20140609
  Transmission Date: 20141212
  Serious: Yes (Hospitalization, Other)
  Sender: FDA-Public Use
  Company Number: US-ABBVIE-14P-163-1242682-00

PATIENT
  Sex: Female
  Weight: 45.4 kg

DRUGS (10)
  1. HUMIRA [Suspect]
     Indication: CROHN^S DISEASE
     Dosage: ONCE
     Dates: start: 201302, end: 201302
  2. HUMIRA [Suspect]
     Dosage: ONCE
     Dates: start: 201302, end: 201302
  3. HUMIRA [Suspect]
     Dates: start: 201303, end: 201312
  4. HUMIRA [Suspect]
     Dates: start: 201405
  5. POTASSIUM [Concomitant]
     Indication: MINERAL SUPPLEMENTATION
  6. MAGNESIUM [Concomitant]
     Indication: MINERAL SUPPLEMENTATION
  7. CYMBALTA [Concomitant]
     Indication: DEPRESSION
  8. ALPRAZOLAM [Concomitant]
     Indication: SLEEP DISORDER
  9. WELLBUTRIN [Concomitant]
     Indication: SMOKING CESSATION THERAPY
  10. METHADONE [Concomitant]
     Indication: PAIN

REACTIONS (6)
  - Vaginal dysplasia [Recovered/Resolved]
  - Intestinal obstruction [Recovered/Resolved]
  - Vaginal lesion [Recovered/Resolved]
  - Crohn^s disease [Recovered/Resolved]
  - Abdominal pain [Recovered/Resolved]
  - Diarrhoea [Recovered/Resolved]
